FAERS Safety Report 8222933-0 (Version None)
Quarter: 2012Q1

REPORT INFORMATION
  Report Type: 
  Country: None (occurrence: None)
  Receive Date: 20120320
  Receipt Date: 20120313
  Transmission Date: 20120608
  Serious: Yes (Other)
  Sender: FDA-Public Use
  Company Number: PHHY2011CA111777

PATIENT
  Sex: Female

DRUGS (1)
  1. GILENYA [Suspect]
     Indication: RELAPSING-REMITTING MULTIPLE SCLEROSIS
     Dosage: 0.5 MG, QD
     Route: 048
     Dates: start: 20111219

REACTIONS (7)
  - NASOPHARYNGITIS [None]
  - CHEST PAIN [None]
  - HAEMOPTYSIS [None]
  - OROPHARYNGEAL PAIN [None]
  - MALAISE [None]
  - DIZZINESS [None]
  - PHARYNGITIS STREPTOCOCCAL [None]
